FAERS Safety Report 14162605 (Version 1)
Quarter: 2017Q4

REPORT INFORMATION
  Report Type: Spontaneous
  Country: US (occurrence: US)
  Receive Date: 20171106
  Receipt Date: 20171106
  Transmission Date: 20180321
  Serious: No
  Sender: FDA-Public Use
  Company Number: US-BAYER-2017-213567

PATIENT
  Age: 11 Year
  Sex: Female
  Weight: 41 kg

DRUGS (1)
  1. MIRALAX [Suspect]
     Active Substance: POLYETHYLENE GLYCOL 3350
     Indication: LAXATIVE SUPPORTIVE CARE
     Dosage: 14 DF, QD
     Route: 048

REACTIONS (3)
  - Inappropriate prescribing [Unknown]
  - Off label use [Unknown]
  - Product use in unapproved indication [Unknown]
